FAERS Safety Report 8793304 (Version 2)
Quarter: 2015Q3

REPORT INFORMATION
  Report Type: Report from Study
  Country: US (occurrence: US)
  Receive Date: 20120918
  Receipt Date: 20150707
  Transmission Date: 20151125
  Serious: Yes (Death)
  Sender: FDA-Public Use
  Company Number: US-ROCHE-1125939

PATIENT
  Age: 72 Year
  Sex: Female
  Weight: 64.92 kg

DRUGS (15)
  1. AVASTIN [Suspect]
     Active Substance: BEVACIZUMAB
     Indication: BREAST CANCER FEMALE
     Route: 042
     Dates: start: 20070313
  2. GEMZAR [Concomitant]
     Active Substance: GEMCITABINE HYDROCHLORIDE
  3. ATIVAN [Concomitant]
     Active Substance: LORAZEPAM
     Route: 065
  4. ZOFRAN [Concomitant]
     Active Substance: ONDANSETRON HYDROCHLORIDE
     Route: 065
  5. DURAGESIC [Concomitant]
     Active Substance: FENTANYL
     Route: 065
  6. PEPCID [Concomitant]
     Active Substance: FAMOTIDINE
     Route: 065
  7. TAXOTERE [Concomitant]
     Active Substance: DOCETAXEL
  8. TYLENOL [Concomitant]
     Active Substance: ACETAMINOPHEN
     Route: 065
  9. ALOXI [Concomitant]
     Active Substance: PALONOSETRON HYDROCHLORIDE
     Route: 065
  10. EPOGEN [Concomitant]
     Active Substance: ERYTHROPOIETIN
  11. BENADRYL [Concomitant]
     Active Substance: DIPHENHYDRAMINE HYDROCHLORIDE
     Route: 065
  12. TAXOL [Concomitant]
     Active Substance: PACLITAXEL
     Route: 065
  13. DECADRON [Concomitant]
     Active Substance: DEXAMETHASONE
     Route: 065
  14. AREDIA [Concomitant]
     Active Substance: PAMIDRONATE DISODIUM
     Route: 065
  15. VICODIN [Concomitant]
     Active Substance: ACETAMINOPHEN\HYDROCODONE BITARTRATE
     Route: 065

REACTIONS (14)
  - Metamorphopsia [Unknown]
  - Death [Fatal]
  - Asthenia [Unknown]
  - Arthralgia [Recovering/Resolving]
  - Sinus operation [Unknown]
  - Anxiety [Unknown]
  - Urinary tract infection [Unknown]
  - Dyspnoea [Unknown]
  - Pain in extremity [Unknown]
  - Fall [Unknown]
  - Dry eye [Unknown]
  - Dizziness [Unknown]
  - Sensory disturbance [Unknown]
  - Off label use [Unknown]

NARRATIVE: CASE EVENT DATE: 200803
